FAERS Safety Report 6323851-5 (Version None)
Quarter: 2009Q3

REPORT INFORMATION
  Report Type: 
  Country: None (occurrence: None)
  Receive Date: 20090824
  Receipt Date: 20090608
  Transmission Date: 20100115
  Serious: No
  Sender: FDA-Public Use
  Company Number: US-ABBOTT-09P-163-0577644-00

PATIENT
  Sex: Female
  Weight: 83.99 kg

DRUGS (9)
  1. NIASPAN [Suspect]
     Indication: BLOOD TRIGLYCERIDES INCREASED
     Dates: start: 20090522
  2. NIASPAN [Suspect]
     Indication: FAMILIAL RISK FACTOR
     Dates: start: 20090501
  3. NIASPAN [Suspect]
     Dates: start: 20090501
  4. IBUPROFEN PRESCRIPTION STRENGTH [Concomitant]
     Indication: DRUG USE FOR UNKNOWN INDICATION
  5. ADVIL [Concomitant]
     Indication: PROPHYLAXIS
  6. LISINOPRIL [Concomitant]
     Indication: DRUG USE FOR UNKNOWN INDICATION
  7. CHLORDIAZEPOXIDE W/CLIDINIUM [Concomitant]
     Indication: DRUG USE FOR UNKNOWN INDICATION
     Dates: end: 20090601
  8. ATENOLOL [Concomitant]
     Indication: DRUG USE FOR UNKNOWN INDICATION
  9. ASPIRIN [Concomitant]
     Indication: DRUG USE FOR UNKNOWN INDICATION

REACTIONS (8)
  - ABDOMINAL DISCOMFORT [None]
  - BLOOD PRESSURE INCREASED [None]
  - DISTURBANCE IN ATTENTION [None]
  - DIZZINESS [None]
  - DRUG DOSE OMISSION [None]
  - FLUSHING [None]
  - PRURITUS [None]
  - SKIN BURNING SENSATION [None]
